FAERS Safety Report 7787183-0 (Version None)
Quarter: 2011Q3

REPORT INFORMATION
  Report Type: 
  Country: None (occurrence: None)
  Receive Date: 20110929
  Receipt Date: 20110920
  Transmission Date: 20111222
  Serious: No
  Sender: FDA-Public Use
  Company Number: US-B.I. PHARMACEUTICALS,INC./RIDGEFIELD-2011-BP-22662BP

PATIENT
  Sex: Female

DRUGS (10)
  1. SINGULAIR [Concomitant]
     Indication: ASTHMA
     Route: 048
     Dates: start: 20050101
  2. DIOVAN [Concomitant]
     Indication: CORONARY ARTERY DISEASE
     Route: 048
     Dates: start: 20110401
  3. CALCIUM CARBONATE [Concomitant]
     Indication: OSTEOPENIA
     Route: 048
     Dates: start: 20060101
  4. NEXIUM [Concomitant]
     Indication: GASTROOESOPHAGEAL REFLUX DISEASE
     Route: 048
     Dates: start: 20050101
  5. CRESTOR [Concomitant]
     Indication: BLOOD CHOLESTEROL INCREASED
     Route: 048
     Dates: start: 20110301
  6. ASPIRIN [Concomitant]
     Indication: CORONARY ARTERY DISEASE
     Dosage: 81 MG
     Route: 048
     Dates: start: 20080101
  7. SPIRIVA [Suspect]
     Indication: CHRONIC OBSTRUCTIVE PULMONARY DISEASE
     Dosage: 18 MCG
     Route: 055
     Dates: start: 20110401
  8. VITAMION D [Concomitant]
     Indication: OSTEOPENIA
     Route: 048
     Dates: start: 20060101
  9. ALBUTEROL [Concomitant]
     Indication: CHRONIC OBSTRUCTIVE PULMONARY DISEASE
     Route: 055
     Dates: start: 20080101
  10. ISO-BID [Concomitant]
     Indication: CORONARY ARTERY DISEASE

REACTIONS (1)
  - DYSPNOEA [None]
